FAERS Safety Report 5558191-5 (Version None)
Quarter: 2007Q4

REPORT INFORMATION
  Report Type: 
  Country: None (occurrence: None)
  Receive Date: 20071130
  Receipt Date: 20070905
  Transmission Date: 20080405
  Serious: No
  Sender: FDA-Public Use
  Company Number: US200709000949

PATIENT
  Age: 58 Year
  Sex: Male

DRUGS (8)
  1. BYETTA [Suspect]
     Indication: TYPE 2 DIABETES MELLITUS
     Dosage: 5 UG, 2/D, SUBCUTANEOUS; 10 UG, 2/D, SUBCUTANEOUS; 20 MG, OTHER, SUBCUTANEOUS
     Route: 058
     Dates: start: 20050101, end: 20050101
  2. BYETTA [Suspect]
     Indication: TYPE 2 DIABETES MELLITUS
     Dosage: 5 UG, 2/D, SUBCUTANEOUS; 10 UG, 2/D, SUBCUTANEOUS; 20 MG, OTHER, SUBCUTANEOUS
     Route: 058
     Dates: start: 20070905, end: 20070905
  3. BYETTA [Suspect]
     Indication: TYPE 2 DIABETES MELLITUS
     Dosage: 5 UG, 2/D, SUBCUTANEOUS; 10 UG, 2/D, SUBCUTANEOUS; 20 MG, OTHER, SUBCUTANEOUS
     Route: 058
     Dates: start: 20050101
  4. GLYBURIDE [Concomitant]
  5. ACTOS [Concomitant]
  6. DIOVAN (HYDROCHLOROTHIAZIDE , VALSARTAN) [Concomitant]
  7. VYTORIN [Concomitant]
  8. ASPIRIN [Concomitant]

REACTIONS (8)
  - ACCIDENTAL OVERDOSE [None]
  - BLOOD GLUCOSE INCREASED [None]
  - BLOOD POTASSIUM INCREASED [None]
  - FUNGAL INFECTION [None]
  - INCORRECT DOSE ADMINISTERED [None]
  - NAUSEA [None]
  - STRESS [None]
  - VOMITING [None]
